FAERS Safety Report 12398745 (Version 2)
Quarter: 2020Q2

REPORT INFORMATION
  Report Type: Report from Study
  Country: AU (occurrence: AU)
  Receive Date: 20160524
  Receipt Date: 20200515
  Transmission Date: 20200713
  Serious: Yes (Hospitalization)
  Sender: FDA-Public Use
  Company Number: AU-JNJFOC-20160305279

PATIENT
  Age: 66 Year
  Sex: Female

DRUGS (1)
  1. STELARA [Suspect]
     Active Substance: USTEKINUMAB
     Indication: PSORIASIS
     Route: 058

REACTIONS (4)
  - Confusional state [Unknown]
  - Hip fracture [Unknown]
  - Peroneal nerve palsy [Unknown]
  - Fall [Unknown]

NARRATIVE: CASE EVENT DATE: 2016
